FAERS Safety Report 17470938 (Version 1)
Quarter: 2020Q1

REPORT INFORMATION
  Report Type: Spontaneous
  Country: FR (occurrence: FR)
  Receive Date: 20200227
  Receipt Date: 20200227
  Transmission Date: 20200409
  Serious: Yes (Hospitalization)
  Sender: FDA-Public Use
  Company Number: FR-BIOMARINAP-FR-2020-128706

PATIENT
  Age: 3 Year
  Sex: Female

DRUGS (1)
  1. BRINEURA [Suspect]
     Active Substance: CERLIPONASE ALFA
     Indication: NEURONAL CEROID LIPOFUSCINOSIS
     Dosage: 300 MILLIGRAM, QOW
     Route: 020
     Dates: start: 201906

REACTIONS (5)
  - Pupil fixed [Unknown]
  - Cognitive disorder [Unknown]
  - Seizure [Unknown]
  - Influenza [Unknown]
  - Gait disturbance [Unknown]

NARRATIVE: CASE EVENT DATE: 202002
